FAERS Safety Report 4711096-1 (Version None)
Quarter: 2005Q3

REPORT INFORMATION
  Report Type: 
  Country: None (occurrence: None)
  Receive Date: 20050711
  Receipt Date: 20050701
  Transmission Date: 20060218
  Serious: Yes (Other)
  Sender: FDA-Public Use
  Company Number: 200516100GDDC

PATIENT
  Age: 31 Year
  Sex: Female

DRUGS (2)
  1. FLAGYL [Suspect]
     Indication: BACTERIAL INFECTION
  2. MERCILON [Concomitant]

REACTIONS (4)
  - CHILLS [None]
  - OEDEMA [None]
  - THERAPY NON-RESPONDER [None]
  - URTICARIA [None]
